FAERS Safety Report 24678573 (Version 1)
Quarter: 2024Q4

REPORT INFORMATION
  Report Type: Spontaneous
  Country: CN (occurrence: CN)
  Receive Date: 20241129
  Receipt Date: 20241129
  Transmission Date: 20250115
  Serious: Yes (Hospitalization, Other)
  Sender: ALKEM
  Company Number: None

PATIENT
  Age: 16 Year
  Sex: Male

DRUGS (11)
  1. ISONIAZID [Suspect]
     Active Substance: ISONIAZID
     Indication: Tuberculosis
     Dosage: 0.3 GRAM, QD (EVERY 1 DAY)
     Route: 065
     Dates: start: 20220125, end: 20220305
  2. ISONIAZID [Suspect]
     Active Substance: ISONIAZID
     Dosage: UNK (REINTRODUCED)
     Route: 065
  3. LINEZOLID [Suspect]
     Active Substance: LINEZOLID
     Indication: Tuberculosis
     Dosage: 0.6 GRAM, QD (EVERY 1 DAY)
     Route: 065
     Dates: start: 20210828, end: 20220124
  4. LINEZOLID [Suspect]
     Active Substance: LINEZOLID
     Dosage: 0.3 GRAM, QD (EVERY 1 DAY)
     Route: 065
     Dates: start: 20220125, end: 20220305
  5. LINEZOLID [Suspect]
     Active Substance: LINEZOLID
     Dosage: UNK (REINTRODUCED)
     Route: 065
  6. CLOFAZIMINE [Concomitant]
     Active Substance: CLOFAZIMINE
     Indication: Tuberculosis
     Dosage: 100 MILLIGRAM, QD (EVERY 1 DAY)
     Route: 065
     Dates: start: 20210828
  7. CYCLOSERINE [Concomitant]
     Active Substance: CYCLOSERINE
     Indication: Tuberculosis
     Dosage: 0.5 GRAM, QD (EVERY 1 DAY)
     Route: 065
     Dates: start: 20210828, end: 20230113
  8. CYCLOSERINE [Concomitant]
     Active Substance: CYCLOSERINE
     Dosage: 0.25 GRAM, QD (EVERY 1 DAY)
     Route: 065
     Dates: start: 20210828, end: 20230113
  9. LEVOFLOXACIN [Concomitant]
     Active Substance: LEVOFLOXACIN
     Indication: Tuberculosis
     Dosage: 0.6 GRAM, QD (EVERY 1 DAY)
     Route: 065
     Dates: start: 20210828, end: 20220517
  10. PROTIONAMIDE [Concomitant]
     Active Substance: PROTIONAMIDE
     Indication: Tuberculosis
     Dosage: 0.2 GRAM, TID (EVERY 8 HOUR)
     Route: 065
     Dates: start: 20210828, end: 20221014
  11. PROTIONAMIDE [Concomitant]
     Active Substance: PROTIONAMIDE
     Indication: Tuberculosis
     Dosage: UNK
     Route: 065
     Dates: start: 20210828, end: 20221014

REACTIONS (3)
  - Neuropathy peripheral [Recovering/Resolving]
  - Leukopenia [Unknown]
  - Anaemia [Unknown]

NARRATIVE: CASE EVENT DATE: 20220125
